FAERS Safety Report 4316572-1 (Version None)
Quarter: 2004Q1

REPORT INFORMATION
  Report Type: 
  Country: None (occurrence: None)
  Receive Date: 20040312
  Receipt Date: 20040312
  Transmission Date: 20041129
  Serious: Yes (Disabling)
  Sender: FDA-Public Use
  Company Number: None

PATIENT
  Age: 31 Year
  Sex: Male
  Weight: 75 kg

DRUGS (2)
  1. SIMPLY WHITE [Suspect]
     Indication: GASTRIC DISORDER
     Dosage: DENTAL
     Route: 004
     Dates: start: 20040211, end: 20040224
  2. SIMPLY WHITE [Suspect]
     Indication: PAIN
     Dosage: DENTAL
     Route: 004
     Dates: start: 20040211, end: 20040224

REACTIONS (1)
  - GASTRIC DISORDER [None]
